FAERS Safety Report 8182828-8 (Version None)
Quarter: 2012Q1

REPORT INFORMATION
  Report Type: 
  Country: None (occurrence: None)
  Receive Date: 20120126
  Receipt Date: 20111122
  Transmission Date: 20120608
  Serious: Yes (Hospitalization)
  Sender: FDA-Public Use
  Company Number: PHEH2011US08289

PATIENT
  Age: 55 Year
  Sex: Female
  Weight: 68.2 kg

DRUGS (18)
  1. ULTRAM [Concomitant]
  2. NEURONTIN [Concomitant]
  3. LORTAB [Concomitant]
  4. ZOFRAN [Concomitant]
  5. BENADRYL (AMMONIUM CHLORIDE, DIPHENHYDRAMINE HYDROCHLORIDE, MENTHOL, S [Concomitant]
  6. NYSTATIN [Concomitant]
  7. KETOPROFEN [Concomitant]
  8. ICAR (IRON PENTACARBONYL) [Concomitant]
  9. RITALIN [Concomitant]
  10. NEURONTIN [Concomitant]
  11. REGLAN [Concomitant]
  12. FENTANYL [Concomitant]
  13. AFINITOR [Suspect]
     Indication: RENAL CANCER METASTATIC
     Dosage: 10 MG DAILY, ORAL
     Route: 048
     Dates: start: 20111024
  14. NEURONTIN [Concomitant]
  15. COUMADIN [Concomitant]
  16. MEGACE [Concomitant]
  17. LIDOCAINE [Concomitant]
  18. MAALOX (ALGELDRATE, MAGNESIUM HYDROXIDE) [Concomitant]

REACTIONS (1)
  - ABDOMINAL PAIN [None]
